FAERS Safety Report 22658064 (Version 1)
Quarter: 2023Q2

REPORT INFORMATION
  Report Type: Spontaneous
  Country: DE (occurrence: None)
  Receive Date: 20230630
  Receipt Date: 20230630
  Transmission Date: 20230721
  Serious: Yes (Other)
  Sender: FDA-Public Use
  Company Number: DE-ROCHE-3378504

PATIENT
  Sex: Male

DRUGS (6)
  1. RITUXIMAB [Suspect]
     Active Substance: RITUXIMAB
     Indication: Diffuse large B-cell lymphoma
     Dosage: 1ST LINE, R-CHOP
     Route: 065
     Dates: start: 20220801, end: 20220915
  2. RITUXIMAB [Suspect]
     Active Substance: RITUXIMAB
     Dosage: 2ND LINE, GMALL/B-NHL-PROTOCL
     Route: 065
     Dates: start: 20221001, end: 20230215
  3. RITUXIMAB [Suspect]
     Active Substance: RITUXIMAB
     Dosage: 3RD LINE, R-POLATUZUMAB-VEDOTIN
     Route: 065
     Dates: start: 20230401, end: 20230415
  4. CYCLOPHOSPHAMIDE\DOXORUBICIN\PREDNISONE\VINCRISTINE [Suspect]
     Active Substance: CYCLOPHOSPHAMIDE\DOXORUBICIN\PREDNISONE\VINCRISTINE
     Indication: Diffuse large B-cell lymphoma
     Dosage: 1ST LINE, R-CHOP
     Route: 065
     Dates: start: 20220801, end: 20220915
  5. POLATUZUMAB VEDOTIN [Suspect]
     Active Substance: POLATUZUMAB VEDOTIN
     Indication: Diffuse large B-cell lymphoma
     Dosage: 3RD LINE, R-POLATUZUMAB-VEDOTIN
     Route: 065
     Dates: start: 20230401, end: 20230415
  6. BENDAMUSTINE [Suspect]
     Active Substance: BENDAMUSTINE
     Indication: Diffuse large B-cell lymphoma
     Dosage: 3RD LINE, R-POLATUZUMAB-VEDOTIN
     Route: 065
     Dates: start: 20230401, end: 20230415

REACTIONS (1)
  - Lymphoma [Not Recovered/Not Resolved]
